FAERS Safety Report 17948395 (Version 1)
Quarter: 2020Q2

REPORT INFORMATION
  Report Type: Spontaneous
  Country: US (occurrence: US)
  Receive Date: 20200626
  Receipt Date: 20200626
  Transmission Date: 20200714
  Serious: Yes (Other)
  Sender: FDA-Public Use
  Company Number: US-PFIZER INC-2020245143

PATIENT
  Age: 53 Year
  Sex: Female

DRUGS (3)
  1. XELJANZ [Suspect]
     Active Substance: TOFACITINIB CITRATE
     Indication: RHEUMATOID ARTHRITIS
     Dosage: 5 MG, 2X/DAY
     Route: 048
     Dates: start: 20200522
  2. LYRICA [Concomitant]
     Active Substance: PREGABALIN
     Dosage: UNK (100 MG)
  3. LINZESS [Concomitant]
     Active Substance: LINACLOTIDE
     Dosage: UNK (145 MCG )

REACTIONS (4)
  - Hypertension [Unknown]
  - Asthenia [Unknown]
  - Renal failure [Unknown]
  - Drug ineffective [Unknown]
